FAERS Safety Report 9068550 (Version 2)
Quarter: 2013Q1

REPORT INFORMATION
  Report Type: Spontaneous
  Country: JP (occurrence: JP)
  Receive Date: 20130128
  Receipt Date: 20130128
  Transmission Date: 20140127
  Serious: Yes (Hospitalization, Other)
  Sender: FDA-Public Use
  Company Number: JP-BAYER-2013-003048

PATIENT
  Age: 62 Year
  Sex: Male

DRUGS (4)
  1. BAYASPIRIN [Suspect]
     Indication: ATRIAL FIBRILLATION
     Route: 048
  2. BAYASPIRIN [Suspect]
     Indication: ANGINA PECTORIS
  3. WARFARIN POTASSIUM [Suspect]
     Indication: ATRIAL FIBRILLATION
     Route: 048
  4. WARFARIN POTASSIUM [Suspect]
     Indication: ANGINA PECTORIS

REACTIONS (7)
  - Road traffic accident [None]
  - Subcutaneous haematoma [None]
  - Local swelling [None]
  - Haemorrhage subcutaneous [None]
  - Epidermal necrosis [None]
  - Blister [None]
  - Skin induration [None]
